FAERS Safety Report 23124495 (Version 1)
Quarter: 2023Q4

REPORT INFORMATION
  Report Type: Report from Study
  Country: HN (occurrence: HN)
  Receive Date: 20231030
  Receipt Date: 20231030
  Transmission Date: 20240110
  Serious: Yes (Other)
  Sender: FDA-Public Use
  Company Number: HN-MYLANLABS-2023M1113439

PATIENT
  Age: 72 Year
  Sex: Female
  Weight: 81.63 kg

DRUGS (8)
  1. LIPITOR [Suspect]
     Active Substance: ATORVASTATIN CALCIUM
     Indication: Blood triglycerides increased
     Dosage: 20 MILLIGRAM, QD
     Route: 048
  2. INMUNOFERON [Concomitant]
     Indication: Immune system disorder
     Dosage: 1 DOSAGE FORM, QD
     Route: 048
     Dates: start: 20220830
  3. Ferrum [Concomitant]
     Indication: Blood iron abnormal
     Dosage: 1 DOSAGE FORM (MONDAY, WEDNESDA Y, AND FRIDAY)
     Route: 048
     Dates: start: 202205
  4. Ferrum [Concomitant]
     Indication: Haemoglobin abnormal
  5. LINAGLIPTIN [Concomitant]
     Active Substance: LINAGLIPTIN
     Indication: Diabetes mellitus
     Dosage: 5 MILLIGRAM, QD
     Route: 048
  6. LEVOTHYROXINE SODIUM [Concomitant]
     Active Substance: LEVOTHYROXINE SODIUM
     Indication: Hypothyroidism
     Dosage: 1 DOSAGE FORM (50 MG DAILY - MONDAY AND WEDNESDAY 75 MG)
     Route: 048
  7. ENALAPRIL MALEATE [Concomitant]
     Active Substance: ENALAPRIL MALEATE
     Indication: Hypertension
     Dosage: 20 MILLIGRAM, QD
     Route: 048
  8. TIAMINAL [Concomitant]
     Indication: Vitamin B12 deficiency
     Dosage: 1 DOSAGE FORM (MONDAY, WEDNESDAY AND FRIDAY)
     Route: 048

REACTIONS (6)
  - Lymphoma [Recovered/Resolved]
  - Retinal operation [Not Recovered/Not Resolved]
  - Accident [Recovered/Resolved]
  - Haemoglobin abnormal [Not Recovered/Not Resolved]
  - Vitamin B12 deficiency [Not Recovered/Not Resolved]
  - Immune system disorder [Not Recovered/Not Resolved]

NARRATIVE: CASE EVENT DATE: 20230926
